FAERS Safety Report 6962126-8 (Version None)
Quarter: 2010Q3

REPORT INFORMATION
  Report Type: 
  Country: None (occurrence: None)
  Receive Date: 20100902
  Receipt Date: 20100818
  Transmission Date: 20110219
  Serious: Yes (Hospitalization)
  Sender: FDA-Public Use
  Company Number: SE-CELGENEUS-150-21880-10090003

PATIENT
  Sex: Female
  Weight: 97.7 kg

DRUGS (2)
  1. REVLIMID [Suspect]
     Indication: MULTIPLE MYELOMA
     Route: 048
     Dates: end: 20100628
  2. REVLIMID [Suspect]
     Route: 048
     Dates: start: 20100706, end: 20100714

REACTIONS (3)
  - GENERAL PHYSICAL HEALTH DETERIORATION [None]
  - OSTEITIS [None]
  - RENAL FAILURE [None]
